FAERS Safety Report 7829968-8 (Version None)
Quarter: 2011Q4

REPORT INFORMATION
  Report Type: 
  Country: None (occurrence: None)
  Receive Date: 20111021
  Receipt Date: 20111003
  Transmission Date: 20120403
  Serious: Yes (Other)
  Sender: FDA-Public Use
  Company Number: US-BAYER-2011-094517

PATIENT
  Sex: Female

DRUGS (1)
  1. MIRENA [Suspect]
     Indication: CONTRACEPTION
     Dosage: UNK
     Dates: start: 20080501

REACTIONS (4)
  - VAGINAL HAEMORRHAGE [None]
  - AMENORRHOEA [None]
  - GENITAL HAEMORRHAGE [None]
  - COITAL BLEEDING [None]
